FAERS Safety Report 20571008 (Version 2)
Quarter: 2023Q1

REPORT INFORMATION
  Report Type: Spontaneous
  Country: US (occurrence: US)
  Receive Date: 20220309
  Receipt Date: 20230307
  Transmission Date: 20230417
  Serious: Yes (Other)
  Sender: FDA-Public Use
  Company Number: US-GILEAD-2022-0572948

PATIENT
  Age: 40 Year
  Sex: Female
  Weight: 90.703 kg

DRUGS (17)
  1. TRUVADA [Suspect]
     Active Substance: EMTRICITABINE\TENOFOVIR DISOPROXIL FUMARATE
     Indication: HIV infection
     Dosage: UNK
     Route: 048
     Dates: start: 2005
  2. TRUVADA [Suspect]
     Active Substance: EMTRICITABINE\TENOFOVIR DISOPROXIL FUMARATE
     Dosage: UNK
     Route: 048
     Dates: start: 200509, end: 200709
  3. EMTRIVA [Concomitant]
     Active Substance: EMTRICITABINE
  4. LISINOPRIL [Concomitant]
     Active Substance: LISINOPRIL
  5. CALCITRIOL [Concomitant]
     Active Substance: CALCITRIOL
  6. RENVELA [Concomitant]
     Active Substance: SEVELAMER CARBONATE
  7. MIRCERA [Concomitant]
     Active Substance: METHOXY POLYETHYLENE GLYCOL-EPOETIN BETA
  8. COMBIVIR [Concomitant]
     Active Substance: LAMIVUDINE\ZIDOVUDINE
  9. CRIXIVAN [Concomitant]
     Active Substance: INDINAVIR SULFATE
  10. EPIVIR [Concomitant]
     Active Substance: LAMIVUDINE
  11. EPZICOM [Concomitant]
     Active Substance: ABACAVIR SULFATE\LAMIVUDINE
  12. INTELENCE [Concomitant]
     Active Substance: ETRAVIRINE
  13. ISENTRESS [Concomitant]
     Active Substance: RALTEGRAVIR POTASSIUM
  14. ISENTRESS [Concomitant]
     Active Substance: RALTEGRAVIR POTASSIUM
  15. RESCRIPTOR [Concomitant]
     Active Substance: DELAVIRDINE MESYLATE
  16. RETROVIR [Concomitant]
     Active Substance: ZIDOVUDINE
  17. SUSTIVA [Concomitant]
     Active Substance: EFAVIRENZ

REACTIONS (10)
  - Chronic kidney disease [Unknown]
  - End stage renal disease [Recovered/Resolved]
  - Renal impairment [Unknown]
  - Emotional distress [Not Recovered/Not Resolved]
  - Anhedonia [Not Recovered/Not Resolved]
  - Osteopenia [Unknown]
  - Bone density decreased [Unknown]
  - Anxiety [Not Recovered/Not Resolved]
  - Pain [Not Recovered/Not Resolved]
  - Protein total increased [Not Recovered/Not Resolved]

NARRATIVE: CASE EVENT DATE: 20060201
